FAERS Safety Report 23764417 (Version 1)
Quarter: 2024Q2

REPORT INFORMATION
  Report Type: Spontaneous
  Country: US (occurrence: US)
  Receive Date: 20240420
  Receipt Date: 20240420
  Transmission Date: 20240716
  Serious: No
  Sender: FDA-Public Use
  Company Number: US-SA-SAC20240416001441

PATIENT
  Sex: Female

DRUGS (5)
  1. ARAVA [Suspect]
     Active Substance: LEFLUNOMIDE
     Indication: Rheumatoid arthritis
  2. REMICADE [Concomitant]
     Active Substance: INFLIXIMAB
  3. RITUXAN [Concomitant]
     Active Substance: RITUXIMAB
  4. MEDROL [Concomitant]
     Active Substance: METHYLPREDNISOLONE
  5. CIMZIA [Concomitant]
     Active Substance: CERTOLIZUMAB PEGOL

REACTIONS (2)
  - Hepatic enzyme increased [Unknown]
  - Hypertransaminasaemia [Unknown]
